FAERS Safety Report 4752577-4 (Version None)
Quarter: 2005Q3

REPORT INFORMATION
  Report Type: 
  Country: None (occurrence: None)
  Receive Date: 20050825
  Receipt Date: 20050401
  Transmission Date: 20060218
  Serious: Yes (Other)
  Sender: FDA-Public Use
  Company Number: DE-BRISTOL-MYERS SQUIBB COMPANY-12919726

PATIENT
  Age: 63 Year
  Sex: Male
  Weight: 85 kg

DRUGS (2)
  1. VM-26 [Suspect]
     Indication: GLIOMA
     Route: 042
     Dates: start: 20050204, end: 20050204
  2. ACNU [Suspect]
     Indication: GLIOMA
     Route: 042
     Dates: start: 20050202, end: 20050202

REACTIONS (2)
  - CARDIAC FAILURE [None]
  - EJECTION FRACTION DECREASED [None]
